FAERS Safety Report 9498171 (Version 2)
Quarter: 2013Q3

REPORT INFORMATION
  Report Type: Report from Study
  Country: AU (occurrence: AU)
  Receive Date: 20130904
  Receipt Date: 20130904
  Transmission Date: 20140515
  Serious: Yes (Hospitalization, Other)
  Sender: FDA-Public Use
  Company Number: AU-ALEXION-A201301591

PATIENT
  Age: 66 Year
  Sex: Male

DRUGS (5)
  1. SOLIRIS [Suspect]
     Indication: PAROXYSMAL NOCTURNAL HAEMOGLOBINURIA
     Dosage: 900 MG, Q2W
     Route: 042
     Dates: start: 201107
  2. WARFARIN [Concomitant]
     Dosage: UNK
  3. CLEXANE [Concomitant]
     Dosage: 100 MG, BID
     Route: 058
  4. INSULIN [Concomitant]
     Dosage: BID
  5. ANTIBIOTICS [Concomitant]
     Indication: PROPHYLAXIS
     Dosage: UNK
     Route: 048
     Dates: start: 20130403

REACTIONS (2)
  - Mesothelioma [Not Recovered/Not Resolved]
  - Pleural effusion [Not Recovered/Not Resolved]
